FAERS Safety Report 12462498 (Version 2)
Quarter: 2016Q2

REPORT INFORMATION
  Report Type: Spontaneous
  Country: CN (occurrence: CN)
  Receive Date: 20160614
  Receipt Date: 20160622
  Transmission Date: 20160815
  Serious: Yes (Other)
  Sender: FDA-Public Use
  Company Number: PHHY2016CN077597

PATIENT
  Age: 60 Year
  Sex: Female

DRUGS (2)
  1. AMANTADINE [Suspect]
     Active Substance: AMANTADINE
     Indication: PARKINSON^S DISEASE
     Dosage: 100 MG, QD
     Route: 065
     Dates: start: 2008
  2. AMANTADINE [Suspect]
     Active Substance: AMANTADINE
     Dosage: 200 MG, QD
     Route: 065
     Dates: start: 2012

REACTIONS (3)
  - Skin lesion [Recovered/Resolved]
  - Macule [Unknown]
  - Livedo reticularis [Unknown]

NARRATIVE: CASE EVENT DATE: 201403
